FAERS Safety Report 10334288 (Version 1)
Quarter: 2014Q3

REPORT INFORMATION
  Report Type: Spontaneous
  Country: US (occurrence: None)
  Receive Date: 20140721
  Receipt Date: 20140721
  Transmission Date: 20150326
  Serious: Yes (Disabling)
  Sender: FDA-Public Use
  Company Number: None

PATIENT
  Age: 48 Year
  Sex: Female
  Weight: 49.9 kg

DRUGS (1)
  1. LEVAQUIN [Suspect]
     Active Substance: LEVOFLOXACIN
     Indication: PNEUMONIA
     Dosage: INTO A VEIN
     Route: 042
     Dates: start: 20110524, end: 20110526

REACTIONS (4)
  - Tendon disorder [None]
  - Myalgia [None]
  - Malaise [None]
  - Tendon discomfort [None]

NARRATIVE: CASE EVENT DATE: 20110524
